FAERS Safety Report 11642048 (Version 2)
Quarter: 2015Q4

REPORT INFORMATION
  Report Type: Spontaneous
  Country: US (occurrence: US)
  Receive Date: 20151019
  Receipt Date: 20151123
  Transmission Date: 20160304
  Serious: Yes (Hospitalization, Other)
  Sender: FDA-Public Use
  Company Number: US-PFIZER INC-2015335169

PATIENT
  Age: 45 Year
  Sex: Female
  Weight: 77.32 kg

DRUGS (10)
  1. ZANAFLEX [Concomitant]
     Active Substance: TIZANIDINE HYDROCHLORIDE
     Indication: MUSCLE SPASMS
     Dosage: 0.4 MG, 3X/DAY
  2. DEVIL^S CLAW [Concomitant]
     Active Substance: HERBALS
     Indication: MYALGIA
     Dosage: 1000 MG, 2X/DAY
  3. DIAZEPAM. [Concomitant]
     Active Substance: DIAZEPAM
     Indication: MUSCLE RELAXANT THERAPY
     Dosage: UNK, 2X/DAY
  4. DIAZEPAM. [Concomitant]
     Active Substance: DIAZEPAM
     Indication: ANXIETY
     Dosage: 5 MG, 3X/DAY
  5. LYRICA [Suspect]
     Active Substance: PREGABALIN
     Indication: FIBROMYALGIA
     Dosage: 100 MG, 3X/DAY
     Route: 048
     Dates: start: 2000
  6. DEVIL^S CLAW [Concomitant]
     Active Substance: HERBALS
     Indication: PAIN
  7. WHITE WILLOW BARK [Concomitant]
     Indication: PAIN
  8. WHITE WILLOW BARK [Concomitant]
     Indication: MYALGIA
     Dosage: 800 MG, 2X/DAY
  9. LYRICA [Suspect]
     Active Substance: PREGABALIN
     Dosage: 50 MG, 3X/DAY
     Dates: start: 201509
  10. AMITRIPTYLINE HYDROCHLORIDE. [Concomitant]
     Active Substance: AMITRIPTYLINE HYDROCHLORIDE
     Indication: MIDDLE INSOMNIA
     Dosage: 10 MG, AT BEDTIME

REACTIONS (33)
  - Hypocalcaemia [Not Recovered/Not Resolved]
  - Osteoporosis [Not Recovered/Not Resolved]
  - Mood altered [Unknown]
  - Pain [Unknown]
  - Arthritis [Not Recovered/Not Resolved]
  - Platelet disorder [Not Recovered/Not Resolved]
  - Visual acuity reduced [Unknown]
  - Back pain [Not Recovered/Not Resolved]
  - Withdrawal syndrome [Unknown]
  - Formication [Unknown]
  - Nausea [Unknown]
  - Raynaud^s phenomenon [Not Recovered/Not Resolved]
  - Drug ineffective [Not Recovered/Not Resolved]
  - Skin abrasion [Unknown]
  - Intervertebral disc protrusion [Unknown]
  - Fall [Not Recovered/Not Resolved]
  - Muscular weakness [Not Recovered/Not Resolved]
  - Sacroiliac fracture [Unknown]
  - Epilepsy [Not Recovered/Not Resolved]
  - Angina pectoris [Not Recovered/Not Resolved]
  - Musculoskeletal pain [Not Recovered/Not Resolved]
  - Feeling jittery [Unknown]
  - Dystonia [Not Recovered/Not Resolved]
  - Insomnia [Not Recovered/Not Resolved]
  - Parathyroid tumour malignant [Unknown]
  - Loss of consciousness [Unknown]
  - Pulmonary mass [Not Recovered/Not Resolved]
  - Arthralgia [Not Recovered/Not Resolved]
  - Cardiac disorder [Unknown]
  - Osteopenia [Not Recovered/Not Resolved]
  - Syncope [Not Recovered/Not Resolved]
  - Chronic obstructive pulmonary disease [Not Recovered/Not Resolved]
  - Basedow^s disease [Not Recovered/Not Resolved]

NARRATIVE: CASE EVENT DATE: 2000
